FAERS Safety Report 8567337 (Version 6)
Quarter: 2012Q4

REPORT INFORMATION
  Report Type: 
  Country: JP (occurrence: JP)
  Receive Date: 20120517
  Receipt Date: 20121102
  Transmission Date: 20130627
  Serious: Yes (Hospitalization, Other)
  Sender: FDA-Public Use
  Company Number: JP-PFIZER INC-2012117795

PATIENT
  Age: 63 Year
  Sex: Female

DRUGS (4)
  1. LIPITOR [Suspect]
     Indication: HYPERLIPIDAEMIA
     Dosage: 10 mg, UID/QD
     Route: 048
  2. NORVASC [Concomitant]
     Dosage: UNK
     Route: 048
  3. MICARDIS [Concomitant]
     Dosage: 40 mg, daily
     Route: 048
  4. ZYLORIC [Concomitant]
     Dosage: UNK
     Route: 048

REACTIONS (1)
  - Renal impairment [Recovering/Resolving]
